FAERS Safety Report 16773231 (Version 5)
Quarter: 2021Q2

REPORT INFORMATION
  Report Type: Report from Study
  Country: JP (occurrence: JP)
  Receive Date: 20190904
  Receipt Date: 20210609
  Transmission Date: 20210716
  Serious: Yes (Hospitalization)
  Sender: FDA-Public Use
  Company Number: JP-ELI_LILLY_AND_COMPANY-JP201908004102

PATIENT
  Age: 72 Year
  Sex: Female

DRUGS (9)
  1. OLCENON [Concomitant]
     Indication: SKIN ULCER
  2. VOLTAREN [DICLOFENAC DIETHYLAMINE] [Concomitant]
     Active Substance: DICLOFENAC DIETHYLAMINE
     Indication: SKIN ULCER
  3. TIGASON [ETRETINATE;TOCOPHEROL] [Concomitant]
     Indication: PUSTULAR PSORIASIS
     Route: 048
  4. TALTZ [Suspect]
     Active Substance: IXEKIZUMAB
     Indication: PUSTULAR PSORIASIS
     Dosage: 160 MG, SINGLE
     Route: 058
     Dates: start: 20180824, end: 20180824
  5. TALTZ [Suspect]
     Active Substance: IXEKIZUMAB
     Dosage: 80 MG, CYCLICAL
     Route: 058
     Dates: start: 20180905, end: 20190214
  6. CALONAL [Concomitant]
     Active Substance: ACETAMINOPHEN
     Indication: SKIN ULCER
  7. JUVELA N [Concomitant]
     Active Substance: TOCOPHERYL NICOTINATE, D-.ALPHA.
     Indication: SKIN ULCER
  8. ALLELOCK [Concomitant]
     Active Substance: OLOPATADINE HYDROCHLORIDE
     Indication: PUSTULAR PSORIASIS
  9. PANDEL [Concomitant]
     Active Substance: HYDROCORTISONE PROBUTATE
     Indication: PUSTULAR PSORIASIS
     Dosage: UNK
     Route: 003

REACTIONS (1)
  - Interstitial lung disease [Recovered/Resolved]

NARRATIVE: CASE EVENT DATE: 20190307
